FAERS Safety Report 23092249 (Version 1)
Quarter: 2023Q4

REPORT INFORMATION
  Report Type: Spontaneous
  Country: IT (occurrence: IT)
  Receive Date: 20231021
  Receipt Date: 20231021
  Transmission Date: 20240109
  Serious: Yes (Other)
  Sender: FDA-Public Use
  Company Number: None

PATIENT
  Age: 22 Year
  Sex: Female

DRUGS (1)
  1. SODIUM FERRIC GLUCONATE COMPLEX [Suspect]
     Active Substance: SODIUM FERRIC GLUCONATE COMPLEX
     Dosage: UNK
     Route: 042
     Dates: start: 20230105, end: 20230105

REACTIONS (3)
  - Pruritus [Recovering/Resolving]
  - Lip pruritus [Recovering/Resolving]
  - Rash [Recovering/Resolving]

NARRATIVE: CASE EVENT DATE: 20230105
